FAERS Safety Report 15043629 (Version 1)
Quarter: 2018Q2

REPORT INFORMATION
  Report Type: Spontaneous
  Country: ZA (occurrence: ZA)
  Receive Date: 20180621
  Receipt Date: 20180621
  Transmission Date: 20180711
  Serious: Yes (Death, Hospitalization)
  Sender: FDA-Public Use
  Company Number: ZA-PFIZER INC-2018249786

PATIENT
  Age: 48 Year
  Sex: Male
  Weight: 50.23 kg

DRUGS (15)
  1. Z (PYRAZINAMIDE) [Suspect]
     Active Substance: PYRAZINAMIDE
     Dosage: UNK
     Dates: start: 20151104
  2. TENOFOVIR + EMTRICITABINE + EFAVIRANZ [Concomitant]
     Active Substance: EFAVIRENZ\EMTRICITABINE\TENOFOVIR DISOPROXIL FUMARATE
     Dosage: UNK
     Dates: start: 2017
  3. INH [Suspect]
     Active Substance: ISONIAZID
     Dosage: UNK
     Dates: start: 20150324
  4. Z (PYRAZINAMIDE) [Suspect]
     Active Substance: PYRAZINAMIDE
     Dosage: UNK
     Dates: start: 20150324
  5. LINEZOLID. [Suspect]
     Active Substance: LINEZOLID
     Indication: PULMONARY TUBERCULOSIS
     Dosage: 600 MG, 1X/DAY
     Route: 048
     Dates: start: 20180422
  6. CLOF (CLOFAZIMINE) [Suspect]
     Active Substance: CLOFAZIMINE
     Indication: PULMONARY TUBERCULOSIS
     Dosage: 100 MG, 1X/DAY
     Route: 048
     Dates: start: 20180422
  7. INH [Suspect]
     Active Substance: ISONIAZID
     Indication: PULMONARY TUBERCULOSIS
     Dosage: 900 MG, 1X/DAY
     Route: 048
     Dates: start: 20180422
  8. Z (PYRAZINAMIDE) [Suspect]
     Active Substance: PYRAZINAMIDE
     Indication: PULMONARY TUBERCULOSIS
     Dosage: 1.5 G, 1X/DAY
     Route: 048
     Dates: start: 20180422
  9. LEVOFLOXACIN. [Suspect]
     Active Substance: LEVOFLOXACIN
     Indication: PULMONARY TUBERCULOSIS
     Dosage: 1 G, 1X/DAY
     Route: 048
     Dates: start: 20180515
  10. BDQ (BEDAQUILINE) [Suspect]
     Active Substance: BEDAQUILINE
     Dosage: 200 MG, UNK (THRICE WEEKLY)
  11. PAS [Suspect]
     Active Substance: AMINOSALICYLIC ACID
     Indication: PULMONARY TUBERCULOSIS
     Dosage: 8 G, 1X/DAY (AT NIGHT)
     Route: 048
     Dates: start: 20180515
  12. PYRIDOXINE [Concomitant]
     Active Substance: PYRIDOXINE
     Dosage: UNK
     Dates: start: 20180422
  13. BDQ (BEDAQUILINE) [Suspect]
     Active Substance: BEDAQUILINE
     Indication: PULMONARY TUBERCULOSIS
     Dosage: 400 MG, 1X/DAY
     Route: 048
     Dates: start: 20180515
  14. BDQ (BEDAQUILINE) [Suspect]
     Active Substance: BEDAQUILINE
     Dosage: UNK
     Dates: start: 20151104
  15. DELAMANID [Suspect]
     Active Substance: DELAMANID
     Indication: PULMONARY TUBERCULOSIS
     Dosage: 100 MG, 2X/DAY
     Route: 048
     Dates: start: 20180515

REACTIONS (1)
  - Drug resistance [Fatal]
